FAERS Safety Report 21170064 (Version 1)
Quarter: 2022Q3

REPORT INFORMATION
  Report Type: Spontaneous
  Country: KR (occurrence: KR)
  Receive Date: 20220804
  Receipt Date: 20220804
  Transmission Date: 20221026
  Serious: Yes (Hospitalization, Other)
  Sender: FDA-Public Use
  Company Number: KR-JNJFOC-20220754529

PATIENT
  Age: 4 Decade
  Sex: Female

DRUGS (12)
  1. RISPERDAL [Suspect]
     Active Substance: RISPERIDONE
     Indication: Product used for unknown indication
     Route: 065
     Dates: start: 201303
  2. RISPERDAL [Suspect]
     Active Substance: RISPERIDONE
     Route: 065
     Dates: start: 201403
  3. RISPERDAL [Suspect]
     Active Substance: RISPERIDONE
     Route: 065
     Dates: start: 201705
  4. LORAZEPAM [Suspect]
     Active Substance: LORAZEPAM
     Indication: Product used for unknown indication
     Route: 065
     Dates: start: 201303
  5. LORAZEPAM [Suspect]
     Active Substance: LORAZEPAM
     Route: 065
     Dates: start: 201403
  6. LORAZEPAM [Suspect]
     Active Substance: LORAZEPAM
     Route: 065
     Dates: start: 201705
  7. PROCYCLIDINE [Suspect]
     Active Substance: PROCYCLIDINE
     Indication: Product used for unknown indication
     Route: 065
     Dates: start: 201303
  8. PROCYCLIDINE [Suspect]
     Active Substance: PROCYCLIDINE
     Route: 065
     Dates: start: 201403
  9. PROCYCLIDINE [Suspect]
     Active Substance: PROCYCLIDINE
     Route: 065
     Dates: start: 201705
  10. BLONANSERIN [Suspect]
     Active Substance: BLONANSERIN
     Indication: Product used for unknown indication
     Route: 065
     Dates: start: 201403
  11. ESCITALOPRAM [Suspect]
     Active Substance: ESCITALOPRAM OXALATE
     Indication: Product used for unknown indication
     Route: 065
     Dates: start: 201403
  12. ESCITALOPRAM [Suspect]
     Active Substance: ESCITALOPRAM OXALATE
     Route: 065
     Dates: start: 201705

REACTIONS (6)
  - Hospitalisation [Unknown]
  - Loss of personal independence in daily activities [Unknown]
  - Treatment noncompliance [Unknown]
  - Hallucination, auditory [Unknown]
  - Depressive symptom [Unknown]
  - Insomnia [Unknown]
